FAERS Safety Report 26011042 (Version 1)
Quarter: 2025Q4

REPORT INFORMATION
  Report Type: Spontaneous
  Country: EU (occurrence: EU)
  Receive Date: 20251107
  Receipt Date: 20251107
  Transmission Date: 20260118
  Serious: Yes (Other)
  Sender: RANBAXY
  Company Number: EU-MINISAL02-1050184

PATIENT
  Age: 64 Year
  Sex: Female

DRUGS (4)
  1. OXALIPLATIN [Suspect]
     Active Substance: OXALIPLATIN
     Indication: Colorectal adenocarcinoma
     Dosage: SCHEME: PANITUMUMAB 6 MG/KG G1+OXALIPLATIN 85 MG/M2 G1+ 5FU BOLUS 400 MG/M2 G1+ 5FU ELASTOMER FOR 46
     Route: 065
     Dates: start: 20250122
  2. OXALIPLATIN [Suspect]
     Active Substance: OXALIPLATIN
     Dosage: 85 MILLIGRAM/KILOGRAM
     Route: 042
  3. VECTIBIX [Suspect]
     Active Substance: PANITUMUMAB
     Indication: Colorectal adenocarcinoma
     Dosage: 6 MILLIGRAM/KILOGRAM
     Route: 065
  4. FLUOROURACIL [Suspect]
     Active Substance: FLUOROURACIL
     Indication: Colorectal adenocarcinoma
     Dosage: 85 MILLIGRAM/SQ. METER
     Route: 065

REACTIONS (3)
  - Rash erythematous [Recovering/Resolving]
  - Photosensitivity reaction [Recovering/Resolving]
  - Xeroderma [Recovering/Resolving]

NARRATIVE: CASE EVENT DATE: 20250528
